FAERS Safety Report 9769262 (Version 1)
Quarter: 2013Q4

REPORT INFORMATION
  Report Type: Spontaneous
  Country: US (occurrence: None)
  Receive Date: 20131217
  Receipt Date: 20131217
  Transmission Date: 20140711
  Serious: Yes (Hospitalization, Disabling, Congenital Anomaly)
  Sender: FDA-Public Use
  Company Number: None

PATIENT
  Age: 16 Year
  Sex: Female
  Weight: 48.54 kg

DRUGS (2)
  1. GABAPENTIN 300 MG [Suspect]
     Dates: start: 20121011
  2. LYRICA 75 MG PFIZER [Suspect]
     Dates: start: 20110625

REACTIONS (4)
  - Loss of consciousness [None]
  - Convulsion [None]
  - Head injury [None]
  - Laceration [None]
